FAERS Safety Report 4931894-9 (Version None)
Quarter: 2006Q1

REPORT INFORMATION
  Report Type: 
  Country: None (occurrence: None)
  Receive Date: 20060303
  Receipt Date: 20060103
  Transmission Date: 20060701
  Serious: Yes (Hospitalization, Other)
  Sender: FDA-Public Use
  Company Number: US-MERCK-0601USA00224

PATIENT
  Age: 64 Year
  Sex: Male
  Weight: 84 kg

DRUGS (23)
  1. VIOXX [Suspect]
     Indication: PAIN
     Route: 048
     Dates: start: 20010101, end: 20050101
  2. [THERAPY UNSPECIFIED] [Concomitant]
     Route: 065
  3. ACETAMINOPHEN AND HYDROCODONE BITARTRATE [Concomitant]
     Route: 065
  4. METOPROLOL [Concomitant]
     Route: 065
  5. MYLANTA [Concomitant]
     Route: 065
  6. COLACE [Concomitant]
     Route: 065
  7. COZAAR [Concomitant]
     Route: 065
  8. ASPIRIN [Concomitant]
     Route: 065
  9. FLONASE [Concomitant]
     Route: 065
  10. TRAMADOL HYDROCHLORIDE [Concomitant]
     Route: 065
  11. PREVACID [Concomitant]
     Route: 065
  12. GLUCOPHAGE [Concomitant]
     Route: 065
  13. GLIPIZIDE [Concomitant]
     Route: 065
  14. AMBIEN [Concomitant]
     Route: 065
  15. ALBUTEROL [Concomitant]
     Route: 065
  16. ADVAIR DISKUS 100/50 [Concomitant]
     Route: 065
  17. GUIATUSS DM [Concomitant]
     Route: 065
  18. LEVAQUIN [Concomitant]
     Route: 065
  19. NEURONTIN [Concomitant]
     Route: 065
  20. DETROL LA [Concomitant]
     Route: 065
  21. TYLENOL W/ CODEINE [Concomitant]
     Route: 065
  22. QUININE SULFATE [Concomitant]
     Route: 065
  23. ISOSORBIDE [Concomitant]
     Route: 065

REACTIONS (50)
  - ABDOMINAL PAIN [None]
  - ABDOMINAL PAIN LOWER [None]
  - ANGIOMYOLIPOMA [None]
  - AORTIC VALVE CALCIFICATION [None]
  - AORTIC VALVE SCLEROSIS [None]
  - ASTHENIA [None]
  - ATELECTASIS [None]
  - BACK INJURY [None]
  - BACK PAIN [None]
  - BENIGN PROSTATIC HYPERPLASIA [None]
  - BRONCHITIS [None]
  - CARDIAC MURMUR [None]
  - CEREBROVASCULAR DISORDER [None]
  - CHEST PAIN [None]
  - CHRONIC RESPIRATORY FAILURE [None]
  - CONTUSION [None]
  - CORONARY ARTERY DISEASE [None]
  - DEPRESSION [None]
  - DERMATITIS [None]
  - DIABETES MELLITUS [None]
  - DIABETIC NEUROPATHY [None]
  - DIASTOLIC DYSFUNCTION [None]
  - DIFFICULTY IN WALKING [None]
  - DIZZINESS [None]
  - DYSPNOEA [None]
  - DYSPNOEA EXERTIONAL [None]
  - DYSURIA [None]
  - EXTRADURAL ABSCESS [None]
  - GASTRITIS [None]
  - GASTROOESOPHAGEAL REFLUX DISEASE [None]
  - HEAD INJURY [None]
  - HEADACHE [None]
  - HYPERTENSION [None]
  - HYPOAESTHESIA [None]
  - INSOMNIA [None]
  - INTERMITTENT CLAUDICATION [None]
  - INTERVERTEBRAL DISC PROTRUSION [None]
  - MITRAL VALVE CALCIFICATION [None]
  - MITRAL VALVE INCOMPETENCE [None]
  - MITRAL VALVE PROLAPSE [None]
  - MUSCLE SPASMS [None]
  - MYOCARDIAL INFARCTION [None]
  - PEPTIC ULCER [None]
  - RENAL CYST [None]
  - ROAD TRAFFIC ACCIDENT [None]
  - SCAN MYOCARDIAL PERFUSION ABNORMAL [None]
  - SINUS TACHYCARDIA [None]
  - SPINAL OSTEOARTHRITIS [None]
  - SYNCOPE [None]
  - URINARY INCONTINENCE [None]
